FAERS Safety Report 7004588-6 (Version None)
Quarter: 2010Q3

REPORT INFORMATION
  Report Type: 
  Country: None (occurrence: None)
  Receive Date: 20100921
  Receipt Date: 20100908
  Transmission Date: 20110219
  Serious: Yes (Hospitalization)
  Sender: FDA-Public Use
  Company Number: FR-ELI_LILLY_AND_COMPANY-FR201009002097

PATIENT
  Age: 62 Year
  Sex: Female

DRUGS (13)
  1. FORTEO [Suspect]
     Indication: OSTEOPOROSIS
     Dosage: 20 UG, DAILY (1/D)
     Route: 065
     Dates: start: 20090812
  2. LANSOYL [Concomitant]
     Indication: CONSTIPATION
     Dosage: UNK, UNKNOWN
     Route: 065
  3. TRANSIPEG [Concomitant]
     Indication: CONSTIPATION
     Dosage: UNK, UNKNOWN
     Route: 065
  4. PERISTALTINE [Concomitant]
     Indication: CONSTIPATION
     Dosage: UNK, UNKNOWN
     Route: 065
  5. NEXIUM [Concomitant]
     Indication: HIATUS HERNIA
     Dosage: UNK, UNKNOWN
     Route: 065
  6. MOTILIUM [Concomitant]
     Indication: HIATUS HERNIA
     Dosage: UNK, UNKNOWN
     Route: 065
  7. GAVISCON /00237601/ [Concomitant]
     Indication: HIATUS HERNIA
     Dosage: UNK, UNKNOWN
     Route: 065
  8. LYRICA [Concomitant]
     Indication: SCIATICA
     Dosage: UNK, UNKNOWN
     Route: 065
  9. LEDERFOLINE [Concomitant]
     Dosage: UNK, UNKNOWN
     Route: 065
  10. ATHYMIL [Concomitant]
     Dosage: UNK, UNKNOWN
     Route: 065
  11. LEXOMIL [Concomitant]
     Dosage: UNK, UNKNOWN
     Route: 065
  12. LASIX [Concomitant]
     Dosage: UNK, UNKNOWN
     Route: 065
  13. PROCTOLOG [Concomitant]
     Indication: HAEMORRHOIDS
     Dosage: UNK, UNKNOWN
     Route: 065

REACTIONS (4)
  - FALL [None]
  - HIP ARTHROPLASTY [None]
  - JOINT DISLOCATION [None]
  - PHLEBITIS [None]
